FAERS Safety Report 6908281-7 (Version None)
Quarter: 2010Q3

REPORT INFORMATION
  Report Type: 
  Country: None (occurrence: None)
  Receive Date: 20100716
  Receipt Date: 20100208
  Transmission Date: 20110219
  Serious: Yes (Other)
  Sender: FDA-Public Use
  Company Number: 2010017103

PATIENT
  Age: 43 Year
  Sex: Male

DRUGS (1)
  1. CELEBREX [Suspect]
     Dates: start: 20091101

REACTIONS (1)
  - MYOCARDIAL INFARCTION [None]
